FAERS Safety Report 5272473-6 (Version None)
Quarter: 2007Q1

REPORT INFORMATION
  Report Type: 
  Country: None (occurrence: None)
  Receive Date: 20070322
  Receipt Date: 20030210
  Transmission Date: 20070707
  Serious: No
  Sender: FDA-Public Use
  Company Number: US-BRISTOL-MYERS SQUIBB COMPANY-12182770

PATIENT
  Age: 90 Year
  Sex: Female
  Weight: 50 kg

DRUGS (5)
  1. KENALOG [Suspect]
     Indication: ROTATOR CUFF SYNDROME
     Dates: start: 20030206
  2. DECADRON [Suspect]
     Dates: start: 20030206
  3. TOPROL-XL [Concomitant]
  4. ASPIRIN [Concomitant]
  5. ZINC [Concomitant]

REACTIONS (1)
  - VISION BLURRED [None]
